FAERS Safety Report 5170629-4 (Version None)
Quarter: 2006Q4

REPORT INFORMATION
  Report Type: 
  Country: None (occurrence: None)
  Receive Date: 20061205
  Receipt Date: 20061121
  Transmission Date: 20070319
  Serious: Yes (Other)
  Sender: FDA-Public Use
  Company Number: 2006144578

PATIENT
  Age: 45 Year
  Sex: Female

DRUGS (1)
  1. ZITHROMAX [Suspect]
     Indication: PNEUMONIA
     Dosage: ORAL
     Route: 048
     Dates: start: 20061015, end: 20061018

REACTIONS (3)
  - AGEUSIA [None]
  - ANOSMIA [None]
  - DYSGEUSIA [None]
